FAERS Safety Report 20210211 (Version 1)
Quarter: 2021Q4

REPORT INFORMATION
  Report Type: Spontaneous
  Country: US (occurrence: US)
  Receive Date: 20211221
  Receipt Date: 20211221
  Transmission Date: 20220303
  Serious: Yes (Other)
  Sender: FDA-Public Use
  Company Number: US-BEH-2021139256

PATIENT
  Sex: Male

DRUGS (4)
  1. IDELVION [Suspect]
     Active Substance: COAGULATION FACTOR IX RECOMBINANT HUMAN
     Indication: Factor IX deficiency
     Dosage: 2040 INTERNATIONAL UNIT, QW
     Route: 042
     Dates: start: 20190611
  2. IDELVION [Suspect]
     Active Substance: COAGULATION FACTOR IX RECOMBINANT HUMAN
     Indication: Factor IX deficiency
     Dosage: 2040 INTERNATIONAL UNIT, QW
     Route: 042
     Dates: start: 20190611
  3. IDELVION [Suspect]
     Active Substance: COAGULATION FACTOR IX RECOMBINANT HUMAN
     Dosage: 600 INTERNATIONAL UNIT, QW
     Route: 042
     Dates: start: 20190611
  4. IDELVION [Suspect]
     Active Substance: COAGULATION FACTOR IX RECOMBINANT HUMAN
     Dosage: 600 INTERNATIONAL UNIT, QW
     Route: 042
     Dates: start: 20190611

REACTIONS (1)
  - Haemarthrosis [Unknown]
